FAERS Safety Report 12558663 (Version 1)
Quarter: 2016Q3

REPORT INFORMATION
  Report Type: Spontaneous
  Country: PR (occurrence: PR)
  Receive Date: 20160715
  Receipt Date: 20160715
  Transmission Date: 20161109
  Serious: Yes (Death)
  Sender: FDA-Public Use
  Company Number: PR-ROCHE-1794973

PATIENT
  Age: 79 Year
  Sex: Male
  Weight: 78.09 kg

DRUGS (1)
  1. ERIVEDGE [Suspect]
     Active Substance: VISMODEGIB
     Indication: BASAL CELL CARCINOMA
     Route: 048
     Dates: start: 20131217

REACTIONS (1)
  - Death [Fatal]

NARRATIVE: CASE EVENT DATE: 20160630
